FAERS Safety Report 4294743-0 (Version None)
Quarter: 2004Q1

REPORT INFORMATION
  Report Type: 
  Country: None (occurrence: None)
  Receive Date: 20040211
  Receipt Date: 20040121
  Transmission Date: 20041129
  Serious: Yes (Life-Threatening)
  Sender: FDA-Public Use
  Company Number: JP_040102542

PATIENT
  Age: 51 Year
  Sex: Male

DRUGS (1)
  1. HUMULIN-HUMAN INSULIN [Suspect]
     Indication: DIABETES MELLITUS

REACTIONS (8)
  - CARDIO-RESPIRATORY ARREST [None]
  - DEPRESSED LEVEL OF CONSCIOUSNESS [None]
  - FEEDING DISORDER [None]
  - GASTROINTESTINAL HAEMORRHAGE [None]
  - HYPOGLYCAEMIA [None]
  - HYPOTHERMIA [None]
  - MELAENA [None]
  - SHOCK [None]
